FAERS Safety Report 7502690-3 (Version None)
Quarter: 2011Q2

REPORT INFORMATION
  Report Type: 
  Country: None (occurrence: None)
  Receive Date: 20110525
  Receipt Date: 20110513
  Transmission Date: 20111010
  Serious: Yes (Other)
  Sender: FDA-Public Use
  Company Number: PHHY2010GB25932

PATIENT
  Sex: Male

DRUGS (5)
  1. SERTRALINE HYDROCHLORIDE [Concomitant]
     Dosage: 50 MG, QD
     Route: 048
  2. METHADONE HCL [Concomitant]
     Dosage: 50 MG, QD
     Route: 048
  3. CLOZARIL [Suspect]
     Dosage: 150 MG, BID
     Route: 048
  4. CLOZARIL [Suspect]
     Indication: SCHIZOPHRENIA
     Dosage: 250 MG, QD
     Route: 048
     Dates: start: 20100407
  5. CLOZARIL [Suspect]
     Dosage: UNK MG, UNK
     Route: 048
     Dates: start: 20100408

REACTIONS (5)
  - HEART RATE INCREASED [None]
  - TACHYCARDIA [None]
  - HALLUCINATION, AUDITORY [None]
  - ABDOMINAL PAIN UPPER [None]
  - CHEST PAIN [None]
